FAERS Safety Report 16902181 (Version 3)
Quarter: 2019Q4

REPORT INFORMATION
  Report Type: Report from Study
  Country: ES (occurrence: ES)
  Receive Date: 20191010
  Receipt Date: 20191030
  Transmission Date: 20200122
  Serious: Yes (Hospitalization)
  Sender: FDA-Public Use
  Company Number: ES-KARYOPHARM-2019KPT000476

PATIENT
  Age: 52 Year
  Sex: Female
  Weight: 53 kg

DRUGS (5)
  1. RANITIDINE HYDROCHLORIDE. [Concomitant]
     Active Substance: RANITIDINE HYDROCHLORIDE
     Indication: PROPHYLAXIS AGAINST GASTROINTESTINAL ULCER
     Dosage: 150 MG, BID
     Route: 048
     Dates: start: 20190806
  2. SELINEXOR [Suspect]
     Active Substance: SELINEXOR
     Indication: ACUTE MYELOID LEUKAEMIA
     Dosage: 100 MG, WEEKLY
     Route: 048
     Dates: start: 20190812
  3. CYTARABINE. [Suspect]
     Active Substance: CYTARABINE
     Indication: ACUTE MYELOID LEUKAEMIA
     Dosage: 1650 MG, QD FOR 6 DAYS
     Route: 042
     Dates: start: 20190806, end: 20190811
  4. MAGNESIUM SULFATE. [Concomitant]
     Active Substance: MAGNESIUM SULFATE
     Indication: HYPOMAGNESAEMIA
     Dosage: 12 MEQ, Q8H
     Route: 042
     Dates: start: 20190806
  5. POSACONAZOLE [Concomitant]
     Active Substance: POSACONAZOLE
     Indication: ANTIFUNGAL PROPHYLAXIS
     Dosage: 300 MG, QD
     Route: 048
     Dates: start: 20190816, end: 20190901

REACTIONS (2)
  - Klebsiella sepsis [Recovered/Resolved]
  - Neutropenia [Recovered/Resolved]

NARRATIVE: CASE EVENT DATE: 20190817
